FAERS Safety Report 9135328 (Version 1)
Quarter: 2013Q1

REPORT INFORMATION
  Report Type: Spontaneous
  Country: US (occurrence: US)
  Receive Date: 20130304
  Receipt Date: 20130304
  Transmission Date: 20140127
  Serious: No
  Sender: FDA-Public Use
  Company Number: US-ALLERGAN-1210648US

PATIENT
  Sex: Female

DRUGS (2)
  1. TAZORAC [Suspect]
     Indication: CYST
     Route: 061
  2. TAZORAC [Suspect]
     Route: 061

REACTIONS (5)
  - Wrong technique in drug usage process [Unknown]
  - Sunburn [Unknown]
  - Rash macular [Not Recovered/Not Resolved]
  - Skin ulcer [Not Recovered/Not Resolved]
  - Off label use [Unknown]
